FAERS Safety Report 6764462-7 (Version None)
Quarter: 2010Q2

REPORT INFORMATION
  Report Type: 
  Country: None (occurrence: None)
  Receive Date: 20100610
  Receipt Date: 20100601
  Transmission Date: 20101027
  Serious: Yes (Death)
  Sender: FDA-Public Use
  Company Number: JP-MONARCH-K201000676

PATIENT
  Sex: Male
  Weight: 56 kg

DRUGS (7)
  1. SYNERCID [Suspect]
     Indication: SEPSIS
     Dosage: 500 MG/KG, TID
     Route: 042
     Dates: start: 20091025, end: 20091104
  2. LINEZOLID [Concomitant]
     Dosage: 1200 MG, QD
     Dates: start: 20091022, end: 20091024
  3. DORIPENEM [Concomitant]
     Dosage: 0.75 G, QD
     Dates: start: 20091013, end: 20091028
  4. OMEPRAZOLE [Concomitant]
     Dosage: 20 MG, QD
     Dates: start: 20091017, end: 20091028
  5. CARBAZOCHROME SODIUM SULFONATE [Concomitant]
     Dosage: 0.5% 10 ML, QD
     Dates: start: 20091017, end: 20091104
  6. PANTHENOL [Concomitant]
     Dosage: 100 MG, QD
     Dates: start: 20091016, end: 20091104
  7. DOPAMINE HYDROCHLORIDE [Concomitant]
     Indication: BLOOD PRESSURE ABNORMAL
     Dosage: 0.3% STRINGE 50 MG, QD
     Dates: start: 20091011, end: 20091104

REACTIONS (1)
  - SEPSIS [None]
